FAERS Safety Report 5105460-9 (Version None)
Quarter: 2006Q3

REPORT INFORMATION
  Report Type: 
  Country: None (occurrence: None)
  Receive Date: 20060915
  Receipt Date: 20060712
  Transmission Date: 20061208
  Serious: No
  Sender: FDA-Public Use
  Company Number: US-GLAXOSMITHKLINE-A0612003A

PATIENT
  Age: 27 Year
  Sex: Male

DRUGS (2)
  1. AVANDARYL [Suspect]
     Dosage: 1TAB PER DAY
     Route: 048
  2. VASOTEC [Concomitant]

REACTIONS (3)
  - INCORRECT DOSE ADMINISTERED [None]
  - OEDEMA [None]
  - VISION BLURRED [None]
